FAERS Safety Report 4507009-8 (Version None)
Quarter: 2004Q4

REPORT INFORMATION
  Report Type: 
  Country: None (occurrence: None)
  Receive Date: 20041117
  Receipt Date: 20041103
  Transmission Date: 20050328
  Serious: Yes (Hospitalization)
  Sender: FDA-Public Use
  Company Number: 2004EU002000

PATIENT
  Age: 50 Year
  Sex: Male

DRUGS (12)
  1. PROGRAF [Suspect]
     Indication: LIVER TRANSPLANT
     Dosage: 7.00, 20.00 MG, D, ORAL
     Route: 048
     Dates: end: 20040824
  2. PROGRAF [Suspect]
     Indication: LIVER TRANSPLANT
     Dosage: 7.00, 20.00 MG, D, ORAL
     Route: 048
     Dates: start: 20040801
  3. PREDNISOLONE [Concomitant]
  4. BACTRIM [Concomitant]
  5. ASPIRIN [Concomitant]
  6. DEXOFEN ^ASTRA^ (DEXTROPROPOXYPHENE NAPSILATE) [Concomitant]
  7. PARACETAMOL [Concomitant]
  8. URSO FALK [Concomitant]
  9. FLORINEF [Concomitant]
  10. FRAGMIN [Concomitant]
  11. NYSTATIN [Concomitant]
  12. ANDAPSIN (SUCRALFATE) [Concomitant]

REACTIONS (6)
  - APHASIA [None]
  - BALANCE DISORDER [None]
  - DYSGRAPHIA [None]
  - DYSPHAGIA [None]
  - MUSCULAR WEAKNESS [None]
  - MYOPATHY [None]
